FAERS Safety Report 21538569 (Version 1)
Quarter: 2022Q4

REPORT INFORMATION
  Report Type: Spontaneous
  Country: CN (occurrence: CN)
  Receive Date: 20221102
  Receipt Date: 20221102
  Transmission Date: 20230113
  Serious: Yes (Other)
  Sender: FDA-Public Use
  Company Number: None

PATIENT
  Age: 49 Year
  Sex: Female
  Weight: 58 kg

DRUGS (7)
  1. CYCLOPHOSPHAMIDE [Suspect]
     Active Substance: CYCLOPHOSPHAMIDE
     Indication: Breast cancer female
     Dosage: 0.95 G, QD, DILUTED WITH 100 ML OF SODIUM CHLORIDE, TC CHEMOTHERAPY
     Route: 041
     Dates: start: 20220930, end: 20220930
  2. SODIUM CHLORIDE [Suspect]
     Active Substance: SODIUM CHLORIDE
     Indication: Medication dilution
     Dosage: 100 ML, QD, USED TO DILUTE 0.95 G OF CYCLOPHOSPHAMIDE, TC CHEMOTHERAPY
     Route: 041
     Dates: start: 20220930, end: 20220930
  3. SODIUM CHLORIDE [Suspect]
     Active Substance: SODIUM CHLORIDE
     Dosage: 250 ML, QD, USED TO DILUTE 120 MG OF DOCETAXEL, TC CHEMOTHERAPY
     Route: 041
     Dates: start: 20220930, end: 20220930
  4. SODIUM CHLORIDE [Suspect]
     Active Substance: SODIUM CHLORIDE
     Dosage: 250 ML, QD, USED TO DILUTE 460 MG OF TRASTUZUMAB (HERCEPTIN)
     Route: 041
     Dates: start: 20220929, end: 20220929
  5. DOCETAXEL [Suspect]
     Active Substance: DOCETAXEL
     Indication: Breast cancer female
     Dosage: 120 MG, QD, DILUTED WITH 250 ML OF SODIUM CHLORIDE, TC CHEMOTHERAPY
     Route: 041
     Dates: start: 20220930, end: 20220930
  6. HERCEPTIN [Suspect]
     Active Substance: TRASTUZUMAB
     Indication: Breast cancer female
     Dosage: 460 MG, QD, DILUTED WITH 250 ML OF SODIUM CHLORIDE
     Route: 041
     Dates: start: 20220929, end: 20220929
  7. HERCEPTIN [Suspect]
     Active Substance: TRASTUZUMAB
     Indication: Targeted cancer therapy

REACTIONS (1)
  - Myelosuppression [Recovering/Resolving]

NARRATIVE: CASE EVENT DATE: 20221007
